FAERS Safety Report 5415189-5 (Version None)
Quarter: 2007Q3

REPORT INFORMATION
  Report Type: 
  Country: None (occurrence: None)
  Receive Date: 20070815
  Receipt Date: 20070718
  Transmission Date: 20080115
  Serious: No
  Sender: FDA-Public Use
  Company Number: A0664825A

PATIENT
  Age: 93 Year
  Sex: Male

DRUGS (11)
  1. COREG CR [Suspect]
     Indication: DRUG USE FOR UNKNOWN INDICATION
     Dosage: 40MG PER DAY
     Route: 048
     Dates: start: 20070711
  2. NITROGLYCERIN [Concomitant]
  3. GLUCOSAMINE [Concomitant]
  4. ZESTRIL [Concomitant]
  5. ALLOPURINOL [Concomitant]
  6. IRON TABLET [Concomitant]
  7. LASIX [Concomitant]
  8. POTASSIUM CHLORIDE [Concomitant]
  9. PLAVIX [Concomitant]
  10. CARDURA [Concomitant]
  11. ZOCOR [Concomitant]

REACTIONS (3)
  - DIZZINESS [None]
  - FATIGUE [None]
  - NAUSEA [None]
